FAERS Safety Report 11347902 (Version 1)
Quarter: 2015Q3

REPORT INFORMATION
  Report Type: Spontaneous
  Country: US (occurrence: US)
  Receive Date: 20150806
  Receipt Date: 20150806
  Transmission Date: 20151125
  Serious: Yes (Other)
  Sender: FDA-Public Use
  Company Number: US-GLAXOSMITHKLINE-US2015110236

PATIENT
  Sex: Female

DRUGS (3)
  1. ALBUTEROL INHALER [Concomitant]
     Active Substance: ALBUTEROL
  2. ADVAIR DISKUS [Suspect]
     Active Substance: FLUTICASONE PROPIONATE\SALMETEROL XINAFOATE
     Indication: ASTHMA
     Dosage: 100MCG/50MCG UNK PUFFS,BID
     Route: 055
  3. ADVAIR DISKUS [Suspect]
     Active Substance: FLUTICASONE PROPIONATE\SALMETEROL XINAFOATE
     Dosage: 500/50 MCG 1 PUFF, BID
     Route: 055

REACTIONS (9)
  - Bronchitis [Recovering/Resolving]
  - Cataract [Unknown]
  - Expired product administered [Unknown]
  - Asthma [Unknown]
  - Cataract operation [Unknown]
  - Retinal tear [Unknown]
  - Retinal operation [Unknown]
  - Viral infection [Unknown]
  - Wrong technique in product usage process [Unknown]

NARRATIVE: CASE EVENT DATE: 2010
